FAERS Safety Report 7492497-8 (Version None)
Quarter: 2011Q2

REPORT INFORMATION
  Report Type: 
  Country: None (occurrence: None)
  Receive Date: 20110519
  Receipt Date: 20110513
  Transmission Date: 20111010
  Serious: Yes (Hospitalization, Other)
  Sender: FDA-Public Use
  Company Number: JP-PFIZER INC-2010082659

PATIENT
  Age: 58 Year
  Sex: Male
  Weight: 51 kg

DRUGS (7)
  1. SOMATROPIN [Suspect]
     Indication: GROWTH HORMONE DEFICIENCY
     Dosage: 0.1 MG, 1X/DAY
     Route: 058
     Dates: start: 20070927
  2. ONE-ALPHA [Concomitant]
     Dosage: UNK
     Route: 048
  3. ACTONEL [Concomitant]
     Dosage: UNK
     Route: 048
  4. CORTRIL [Concomitant]
     Dosage: UNK
     Route: 048
  5. SOMATROPIN [Suspect]
     Dosage: 0.2 MG, 1X/DAY
     Route: 058
     Dates: start: 20090514, end: 20100701
  6. LEVOTHYROXINE SODIUM [Concomitant]
     Dosage: UNK
     Route: 048
  7. DESMOPRESSIN [Concomitant]
     Dosage: UNK
     Route: 045

REACTIONS (1)
  - PITUITARY TUMOUR BENIGN [None]
